FAERS Safety Report 9915524 (Version 1)
Quarter: 2014Q1

REPORT INFORMATION
  Report Type: Report from Study
  Country: FR (occurrence: FR)
  Receive Date: 20140221
  Receipt Date: 20140221
  Transmission Date: 20141002
  Serious: Yes (Other)
  Sender: FDA-Public Use
  Company Number: FR-ROCHE-1350016

PATIENT
  Sex: Male

DRUGS (1)
  1. RITUXIMAB [Suspect]
     Indication: ENCEPHALITIS AUTOIMMUNE
     Route: 042

REACTIONS (2)
  - Hypoxic-ischaemic encephalopathy [Unknown]
  - Septic shock [Unknown]
